FAERS Safety Report 5318416-8 (Version None)
Quarter: 2007Q2

REPORT INFORMATION
  Report Type: 
  Country: None (occurrence: None)
  Receive Date: 20070507
  Receipt Date: 20070427
  Transmission Date: 20071010
  Serious: Yes (Hospitalization, Other)
  Sender: FDA-Public Use
  Company Number: US-MERCK-0612USA01775

PATIENT
  Age: 55 Year
  Sex: Female
  Weight: 71 kg

DRUGS (4)
  1. FOSAMAX [Suspect]
     Indication: BONE DENSITY DECREASED
     Route: 048
     Dates: start: 19981101
  2. FOSAMAX [Suspect]
     Route: 048
     Dates: end: 20011201
  3. ACTONEL [Suspect]
     Indication: BONE DENSITY DECREASED
     Route: 048
     Dates: start: 20011201
  4. ACTONEL [Suspect]
     Route: 048
     Dates: end: 20040901

REACTIONS (8)
  - ANKLE FRACTURE [None]
  - DEPRESSION [None]
  - EAR INFECTION [None]
  - FRACTURE [None]
  - HIP FRACTURE [None]
  - OROANTRAL FISTULA [None]
  - OSTEOMYELITIS [None]
  - OSTEONECROSIS [None]
